FAERS Safety Report 25662705 (Version 1)
Quarter: 2025Q3

REPORT INFORMATION
  Report Type: Other
  Country: US (occurrence: US)
  Receive Date: 20250811
  Receipt Date: 20250811
  Transmission Date: 20251021
  Serious: Yes (Death, Hospitalization, Other)
  Sender: BIONPHARMA INC.
  Company Number: US-Bion-015181

PATIENT
  Sex: Female

DRUGS (1)
  1. LOPERAMIDE HYDROCHLORIDE [Suspect]
     Active Substance: LOPERAMIDE HYDROCHLORIDE
     Indication: Back pain

REACTIONS (10)
  - Cardiac arrest [Fatal]
  - Supraventricular tachycardia [Fatal]
  - Ventricular fibrillation [Fatal]
  - Metabolic acidosis [Fatal]
  - Hypotension [Fatal]
  - Ventricular tachycardia [Fatal]
  - Brain injury [Fatal]
  - Toxicity to various agents [Fatal]
  - Drug abuse [Fatal]
  - Intentional overdose [Fatal]
